FAERS Safety Report 9089808 (Version 7)
Quarter: 2013Q3

REPORT INFORMATION
  Report Type: Report from Study
  Country: CA (occurrence: CA)
  Receive Date: 20130131
  Receipt Date: 20130717
  Transmission Date: 20140515
  Serious: Yes (Life-Threatening, Hospitalization)
  Sender: FDA-Public Use
  Company Number: CA-CELGENEUS-028-21880-13014343

PATIENT
  Age: 76 Year
  Sex: Female
  Weight: 86 kg

DRUGS (34)
  1. REVLIMID [Suspect]
     Indication: PLASMA CELL MYELOMA
     Route: 048
     Dates: start: 20121220, end: 20130123
  2. DEXAMETHASONE [Suspect]
     Indication: PRODUCT USED FOR UNKNOWN INDICATION
     Route: 048
     Dates: start: 20121220, end: 20130124
  3. DEXAMETHASONE [Suspect]
     Dosage: 40 MILLIGRAM
     Route: 048
     Dates: start: 20121220
  4. ELOTUZUMAB [Suspect]
     Indication: PLASMA CELL MYELOMA
     Route: 041
     Dates: start: 20121220, end: 20130117
  5. HYDROCHLOROTHIAZIDE [Concomitant]
     Indication: PRODUCT USED FOR UNKNOWN INDICATION
     Route: 065
     Dates: start: 1999, end: 20130125
  6. SIMVASTATIN [Concomitant]
     Indication: PRODUCT USED FOR UNKNOWN INDICATION
     Route: 065
     Dates: start: 2000
  7. GLICLAZIDE [Concomitant]
     Indication: PRODUCT USED FOR UNKNOWN INDICATION
     Route: 065
     Dates: start: 1998, end: 20130305
  8. METFORMIN [Concomitant]
     Indication: PRODUCT USED FOR UNKNOWN INDICATION
     Route: 065
     Dates: start: 1998, end: 20130305
  9. CANDESARTAN [Concomitant]
     Indication: PRODUCT USED FOR UNKNOWN INDICATION
     Route: 065
     Dates: start: 20120920, end: 20130305
  10. TECTA [Concomitant]
     Indication: PRODUCT USED FOR UNKNOWN INDICATION
     Route: 065
     Dates: start: 20120831
  11. ASA [Concomitant]
     Indication: PRODUCT USED FOR UNKNOWN INDICATION
     Route: 065
     Dates: start: 2000
  12. TYLENOL [Concomitant]
     Indication: PRODUCT USED FOR UNKNOWN INDICATION
     Route: 065
     Dates: start: 20121030
  13. GRAVOL [Concomitant]
     Indication: ADVERSE EVENT
     Route: 065
     Dates: start: 20121229, end: 20130305
  14. GRAVOL [Concomitant]
     Route: 065
     Dates: start: 20130304, end: 20130304
  15. ZOFRAN [Concomitant]
     Indication: ADVERSE EVENT
     Route: 065
     Dates: start: 20130104, end: 20130305
  16. ZOFRAN [Concomitant]
     Route: 065
     Dates: start: 20130614
  17. SENOKOT [Concomitant]
     Indication: ADVERSE EVENT
     Route: 065
     Dates: start: 20130106, end: 20130305
  18. GLYCERIN [Concomitant]
     Indication: ADVERSE EVENT
     Route: 065
     Dates: start: 20130122, end: 20130122
  19. IMODIUM [Concomitant]
     Indication: ADVERSE EVENT
     Route: 065
     Dates: start: 20130127, end: 20130305
  20. VOLTREX [Concomitant]
     Indication: ADVERSE EVENT
     Route: 065
     Dates: start: 20130124, end: 20130226
  21. DILAUDID [Concomitant]
     Indication: ADVERSE EVENT
     Route: 065
     Dates: start: 20130210, end: 20130305
  22. DILAUDID [Concomitant]
     Route: 065
     Dates: start: 20130305, end: 20130305
  23. NORMAL SALINE [Concomitant]
     Indication: ADVERSE EVENT
     Route: 065
     Dates: start: 20130124, end: 20130125
  24. MAXERAN [Concomitant]
     Indication: ADVERSE EVENT
     Route: 065
     Dates: start: 20130302
  25. CIPROFLOXACIN [Concomitant]
     Indication: ADVERSE EVENT
     Route: 065
     Dates: start: 20130325, end: 20130401
  26. PEPTO BISMOL [Concomitant]
     Indication: ADVERSE EVENT
     Route: 065
     Dates: start: 20130320, end: 20130502
  27. SALBUTAMOL [Concomitant]
     Indication: PRODUCT USED FOR UNKNOWN INDICATION
     Route: 065
     Dates: start: 20130307, end: 20130307
  28. FUROSEMIDE [Concomitant]
     Indication: PRODUCT USED FOR UNKNOWN INDICATION
     Route: 065
     Dates: start: 20130308, end: 20130310
  29. CALCITONIN SALMON [Concomitant]
     Indication: PRODUCT USED FOR UNKNOWN INDICATION
     Route: 065
     Dates: start: 20130304, end: 20130305
  30. GLUCOSE [Concomitant]
     Indication: PRODUCT USED FOR UNKNOWN INDICATION
     Route: 065
     Dates: start: 20130305, end: 20130305
  31. DEXTROSE [Concomitant]
     Indication: PRODUCT USED FOR UNKNOWN INDICATION
     Route: 065
     Dates: start: 20130305, end: 20130305
  32. HUMULIN R [Concomitant]
     Indication: PRODUCT USED FOR UNKNOWN INDICATION
     Route: 065
     Dates: start: 20130305, end: 20130305
  33. GLUCAGON [Concomitant]
     Indication: PRODUCT USED FOR UNKNOWN INDICATION
     Route: 065
     Dates: start: 20130305, end: 20130305
  34. EPREX [Concomitant]
     Indication: PRODUCT USED FOR UNKNOWN INDICATION
     Route: 065
     Dates: start: 20130624

REACTIONS (3)
  - Hypotension [Recovered/Resolved]
  - Dehydration [Recovered/Resolved]
  - Renal failure [Recovered/Resolved]
